FAERS Safety Report 8328910 (Version 3)
Quarter: 2013Q2

REPORT INFORMATION
  Report Type: Spontaneous
  Country: US (occurrence: US)
  Receive Date: 20120110
  Receipt Date: 20130605
  Transmission Date: 20140414
  Serious: No
  Sender: FDA-Public Use
  Company Number: US-PFIZER INC-2012005859

PATIENT
  Age: 83 Year
  Sex: Female

DRUGS (9)
  1. PREMPRO [Suspect]
     Dosage: UNK
  2. TRAMADOL [Concomitant]
     Dosage: UNK
  3. METFORMIN ER [Concomitant]
     Dosage: UNK
  4. GLIPIZIDE [Concomitant]
     Dosage: UNK
  5. AMLODIPINE [Concomitant]
     Dosage: UNK
  6. CLONIDINE [Concomitant]
     Dosage: UNK
  7. BENAZEPRIL [Concomitant]
     Dosage: UNK
  8. HCTZ [Concomitant]
     Dosage: UNK
  9. EQUATE VITAMIN D [Concomitant]
     Dosage: UNK

REACTIONS (2)
  - Insomnia [Recovering/Resolving]
  - Dry skin [Unknown]
